FAERS Safety Report 4375889-5 (Version None)
Quarter: 2004Q2

REPORT INFORMATION
  Report Type: 
  Country: None (occurrence: None)
  Receive Date: 20040607
  Receipt Date: 20040524
  Transmission Date: 20050107
  Serious: Yes (Death, Hospitalization)
  Sender: FDA-Public Use
  Company Number: JP-JNJFOC-20040506901

PATIENT
  Age: 64 Year
  Sex: Female

DRUGS (5)
  1. REMICADE [Suspect]
     Indication: RHEUMATOID ARTHRITIS
     Dosage: IN 1 AS NECESSARY , INTRAVENOUS DRIP
     Route: 041
     Dates: start: 20040227, end: 20040227
  2. REMICADE [Suspect]
     Indication: RHEUMATOID ARTHRITIS
     Dosage: IN 1 AS NECESSARY , INTRAVENOUS DRIP
     Route: 041
     Dates: start: 20040312, end: 20040312
  3. RHEUMATREX [Suspect]
     Dosage: ORAL
     Route: 048
  4. STEROID (CORTICOSTEROID NOS) UNKNOWN [Suspect]
  5. BREDININ (MIZORIBINE) UNKNOWN [Suspect]

REACTIONS (6)
  - BACTERAEMIA [None]
  - CATHETER RELATED INFECTION [None]
  - DRUG INTERACTION [None]
  - PYREXIA [None]
  - SEPSIS [None]
  - SKIN ULCER [None]
